FAERS Safety Report 9217880 (Version 1)
Quarter: 2013Q2

REPORT INFORMATION
  Report Type: Report from Study
  Country: US (occurrence: US)
  Receive Date: 20130408
  Receipt Date: 20130408
  Transmission Date: 20140414
  Serious: Yes (Other)
  Sender: FDA-Public Use
  Company Number: US-BAXTER-2013BAX012293

PATIENT
  Age: 30 Year
  Sex: Female

DRUGS (3)
  1. GAMMAGARD LIQUID [Suspect]
     Indication: LYME DISEASE
     Route: 042
     Dates: end: 20121220
  2. GAMMAGARD LIQUID [Suspect]
     Indication: BABESIOSIS
  3. GAMMAGARD LIQUID [Suspect]
     Indication: OFF LABEL USE

REACTIONS (4)
  - Influenza [Recovered/Resolved]
  - Pneumonia [Recovered/Resolved]
  - Cellulitis [Recovered/Resolved]
  - Malaise [Not Recovered/Not Resolved]
